FAERS Safety Report 7403996-9 (Version None)
Quarter: 2011Q2

REPORT INFORMATION
  Report Type: 
  Country: None (occurrence: None)
  Receive Date: 20110408
  Receipt Date: 20110228
  Transmission Date: 20111010
  Serious: Yes (Hospitalization, Other)
  Sender: FDA-Public Use
  Company Number: US-BAYER-201042105NA

PATIENT
  Age: 25 Year
  Sex: Female
  Weight: 50.34 kg

DRUGS (6)
  1. IBUPROFEN [Concomitant]
     Dosage: 600 MG, UNK
  2. ADAPALENE [Concomitant]
     Route: 061
  3. ACETAMINOPHEN AND HYDROCODONE BITARTRATE [Concomitant]
  4. YASMIN [Suspect]
     Indication: CONTRACEPTION
     Route: 048
     Dates: start: 20080506, end: 20090127
  5. YASMIN [Suspect]
     Indication: PREMENSTRUAL SYNDROME
  6. ERYTHROMYCIN ETHYLSUCCINATE [Concomitant]
     Dosage: 400 MG, BID

REACTIONS (4)
  - CHOLECYSTITIS CHRONIC [None]
  - BILIARY DYSKINESIA [None]
  - ABDOMINAL PAIN [None]
  - CHOLECYSTECTOMY [None]
